FAERS Safety Report 5960308-5 (Version None)
Quarter: 2008Q4

REPORT INFORMATION
  Report Type: 
  Country: None (occurrence: None)
  Receive Date: 20081120
  Receipt Date: 20081113
  Transmission Date: 20090506
  Serious: Yes (Other)
  Sender: FDA-Public Use
  Company Number: JP-SANOFI-SYNTHELABO-A01200813340

PATIENT
  Sex: Female
  Weight: 56.5 kg

DRUGS (1)
  1. PLAVIX [Suspect]
     Indication: CEREBRAL INFARCTION
     Route: 048
     Dates: start: 20080413, end: 20081010

REACTIONS (2)
  - CHOLESTATIC LIVER INJURY [None]
  - JAUNDICE [None]
